FAERS Safety Report 11419684 (Version 1)
Quarter: 2015Q3

REPORT INFORMATION
  Report Type: Spontaneous
  Country: US (occurrence: None)
  Receive Date: 20150825
  Receipt Date: 20150825
  Transmission Date: 20151125
  Serious: Yes (Hospitalization, Disabling, Other)
  Sender: FDA-Public Use
  Company Number: None

PATIENT
  Age: 60 Year
  Sex: Male
  Weight: 113.4 kg

DRUGS (23)
  1. VIT-B12 [Concomitant]
  2. BENTONITE [Concomitant]
     Active Substance: BENTONITE
  3. BLUE BERRIES [Concomitant]
  4. MAGNESIUM CITRATE. [Concomitant]
     Active Substance: MAGNESIUM CITRATE
  5. SELENIUM SEED + HUSKS [Concomitant]
  6. GINGER ROOTS [Concomitant]
  7. GARLIC LEMON W/BICARBONATE SODA [Concomitant]
  8. CITRACIL [Concomitant]
  9. SEROQUEL [Suspect]
     Active Substance: QUETIAPINE FUMARATE
     Indication: DEPRESSED MOOD
     Route: 048
  10. CALCIUM CITRATE [Concomitant]
     Active Substance: CALCIUM CITRATE
  11. SEROQUEL [Suspect]
     Active Substance: QUETIAPINE FUMARATE
     Indication: SLEEP DISORDER
     Route: 048
  12. ROSPINAROL [Concomitant]
  13. HONEY [Concomitant]
     Active Substance: HONEY
  14. LISONAPRIL [Concomitant]
  15. LORAZEPAM. [Concomitant]
     Active Substance: LORAZEPAM
  16. VITAMIN C [Concomitant]
     Active Substance: ASCORBIC ACID
  17. TURMERIC [Concomitant]
     Active Substance: TURMERIC
  18. MOLASSES [Concomitant]
  19. CILANTRO EXTRACT [Concomitant]
  20. PLAIN YOUGURT [Concomitant]
  21. D-3 [Concomitant]
     Active Substance: CHOLECALCIFEROL
  22. CIGAR VINEGAR [Concomitant]
  23. CURRY AND COD LIVER OIL [Concomitant]

REACTIONS (8)
  - Seizure [None]
  - Gout [None]
  - Withdrawal syndrome [None]
  - Restless legs syndrome [None]
  - Suicide attempt [None]
  - Muscle spasms [None]
  - Muscle rigidity [None]
  - Coma [None]

NARRATIVE: CASE EVENT DATE: 20130523
